FAERS Safety Report 8792150 (Version 1)
Quarter: 2012Q4

REPORT INFORMATION
  Report Type: 
  Country: US (occurrence: US)
  Receive Date: 20120918
  Receipt Date: 20120918
  Transmission Date: 20130627
  Serious: No
  Sender: FDA-Public Use
  Company Number: US-VERTEX PHARMACEUTICAL INC.-AE-2012-011037

PATIENT
  Age: 36 Year
  Sex: Male

DRUGS (8)
  1. INCIVEK [Suspect]
     Indication: HEPATITIS C
     Dosage: UNK
     Route: 048
     Dates: start: 20120613
  2. RIBAVIRIN [Concomitant]
     Indication: HEPATITIS C
     Dosage: UNK
     Dates: start: 20120613
  3. PEGASYS [Concomitant]
     Indication: HEPATITIS C
     Dosage: UNK
     Dates: start: 20120613
  4. BUSPAN [Concomitant]
  5. LORTAB                             /00607101/ [Concomitant]
  6. PAXIL [Concomitant]
  7. LATUDA [Concomitant]
  8. ZYPREXA [Concomitant]

REACTIONS (1)
  - Blood creatinine increased [Not Recovered/Not Resolved]
